FAERS Safety Report 8442716-6 (Version None)
Quarter: 2012Q2

REPORT INFORMATION
  Report Type: 
  Country: None (occurrence: None)
  Receive Date: 20120615
  Receipt Date: 20120611
  Transmission Date: 20120825
  Serious: Yes (Other)
  Sender: FDA-Public Use
  Company Number: ES-FRI-1000029831

PATIENT
  Sex: Female

DRUGS (11)
  1. FORMOTEROL FUMARATE [Concomitant]
  2. ACETAMINOPHEN [Concomitant]
  3. DILTIAZEM HYDROCHOLORIDE [Suspect]
     Indication: HYPERTENSION
     Dosage: 200 MG
     Dates: start: 20090416
  4. ACENOCOUMAROL [Suspect]
     Indication: ATRIAL FIBRILLATION
     Dates: start: 20090416, end: 20100531
  5. OMEPRAZOLE [Concomitant]
  6. TIOTROPIUM BROMIDE [Concomitant]
     Indication: ASTHMA
     Dates: start: 20080130
  7. FUROSEMIDE [Concomitant]
     Indication: HYPERTENSION
     Dates: start: 20081120
  8. PANTOPRAZOLE [Concomitant]
     Indication: ARTHRITIS
     Dates: start: 20080130
  9. METFORMIN HCL [Concomitant]
     Indication: TYPE 2 DIABETES MELLITUS
     Dates: start: 20080130
  10. BUDESONIDE [Concomitant]
     Indication: ASTHMA
     Dates: start: 20080130
  11. NSAID'S [Concomitant]

REACTIONS (1)
  - CALCIPHYLAXIS [None]
